FAERS Safety Report 15455307 (Version 2)
Quarter: 2018Q4

REPORT INFORMATION
  Report Type: Report from Study
  Country: US (occurrence: US)
  Receive Date: 20181002
  Receipt Date: 20181102
  Transmission Date: 20190204
  Serious: Yes (Death, Hospitalization, Other)
  Sender: FDA-Public Use
  Company Number: PHEH2018US040106

PATIENT
  Age: 73 Year
  Sex: Female

DRUGS (1)
  1. VOTRIENT [Suspect]
     Active Substance: PAZOPANIB HYDROCHLORIDE
     Indication: PRODUCT USED FOR UNKNOWN INDICATION
     Dosage: 200 MG, UNK
     Route: 048

REACTIONS (7)
  - Blood disorder [Unknown]
  - Neoplasm malignant [Unknown]
  - Confusional state [Unknown]
  - Blood count abnormal [Unknown]
  - Disorientation [Unknown]
  - Death [Fatal]
  - Ammonia abnormal [Unknown]

NARRATIVE: CASE EVENT DATE: 20181026
